FAERS Safety Report 8605402 (Version 2)
Quarter: 2012Q4

REPORT INFORMATION
  Report Type: 
  Country: US (occurrence: US)
  Receive Date: 20120608
  Receipt Date: 20121009
  Transmission Date: 20130627
  Serious: Yes (Hospitalization)
  Sender: FDA-Public Use
  Company Number: US-ENDO PHARMACEUTICALS INC.-OPCR20120043

PATIENT
  Age: 52 None
  Sex: Female
  Weight: 53.57 kg

DRUGS (5)
  1. OPANA ER [Suspect]
     Indication: PRODUCT USED FOR UNKNOWN INDICATION
     Route: 048
     Dates: start: 201203
  2. OPANA ER [Suspect]
     Route: 048
     Dates: start: 2012
  3. OPANA ER [Concomitant]
     Indication: PRODUCT USED FOR UNKNOWN INDICATION
     Route: 048
     Dates: end: 2012
  4. OPANA ER [Concomitant]
     Route: 048
     Dates: end: 2012
  5. OPANA ER 40MG [Concomitant]
     Indication: PRODUCT USED FOR UNKNOWN INDICATION
     Dosage: UNKNOWN
     Route: 048
     Dates: end: 2012

REACTIONS (4)
  - Intestinal obstruction [Not Recovered/Not Resolved]
  - Influenza like illness [Recovered/Resolved]
  - Medication residue [Recovered/Resolved]
  - Drug effect decreased [Not Recovered/Not Resolved]
